FAERS Safety Report 5023152-1 (Version None)
Quarter: 2006Q2

REPORT INFORMATION
  Report Type: 
  Country: None (occurrence: None)
  Receive Date: 20060530
  Receipt Date: 20060512
  Transmission Date: 20061013
  Serious: Yes (Death)
  Sender: FDA-Public Use
  Company Number: 2006BH010018

PATIENT
  Age: 34 Year
  Sex: Male
  Weight: 134.2647 kg

DRUGS (5)
  1. ANTICOAGULANT SODIUM CITRATE SOLUTION 250 ML [Suspect]
     Indication: PLASMAPHERESIS
     Dosage: ONCE;IV
     Route: 042
     Dates: start: 20060506, end: 20060506
  2. SODIUM CHLORIDE 0.9% [Suspect]
     Indication: PLASMAPHERESIS
     Dosage: ONCE;IV
     Route: 042
     Dates: start: 20060506, end: 20060506
  3. ANTIDEPRESSANTS [Concomitant]
  4. ANTI-ANXIETY [Concomitant]
  5. MOOD-BRIGHTENING MEDICATIONS [Concomitant]

REACTIONS (1)
  - MYOCARDIAL INFARCTION [None]
